FAERS Safety Report 16923551 (Version 1)
Quarter: 2019Q4

REPORT INFORMATION
  Report Type: Report from Study
  Country: IE (occurrence: IE)
  Receive Date: 20191016
  Receipt Date: 20191016
  Transmission Date: 20200122
  Serious: Yes (Hospitalization)
  Sender: FDA-Public Use
  Company Number: IE-AMGEN-IRLSL2019170542

PATIENT
  Age: 78 Year
  Sex: Male

DRUGS (15)
  1. CALCICHEW [Concomitant]
     Active Substance: CALCIUM CARBONATE
     Dosage: 1 MILLIGRAM, BID
     Route: 050
  2. ANXICALM [ALPRAZOLAM] [Concomitant]
     Dosage: 2 MILLIGRAM, QD
     Route: 050
  3. PANTOPRAZOLE [Concomitant]
     Active Substance: PANTOPRAZOLE
     Dosage: 40 MILLIGRAM, QD
     Route: 050
  4. HALCION [Concomitant]
     Active Substance: TRIAZOLAM
     Dosage: 125 MILLIGRAM, QD
     Route: 050
  5. NYSTATIN. [Concomitant]
     Active Substance: NYSTATIN
     Dosage: 1 MILLILITER, QID
     Route: 050
  6. CALVAPEN [Concomitant]
     Dosage: 666 MILLIGRAM, QID
     Route: 050
  7. LACTULOSE. [Concomitant]
     Active Substance: LACTULOSE
     Dosage: 10 MILLILITER, TID
     Route: 050
  8. EMEND [Concomitant]
     Active Substance: APREPITANT
     Dosage: 80 MILLIGRAM, QD
     Route: 050
  9. ASPRIN [Concomitant]
     Active Substance: ASPIRIN
     Dosage: 75 MILLIGRAM, QD
     Route: 050
  10. ATORVASTATIN [Concomitant]
     Active Substance: ATORVASTATIN
     Dosage: 40 MILLIGRAM, QD
     Route: 050
  11. EXFORGE [Concomitant]
     Active Substance: AMLODIPINE BESYLATE\VALSARTAN
     Dosage: 1 MILLIGRAM, QD
     Route: 050
  12. FLUCLOXACILLIN [Concomitant]
     Active Substance: FLUCLOXACILLIN
     Dosage: 500 MILLIGRAM, QID
     Route: 050
  13. VIMOVO [Concomitant]
     Active Substance: ESOMEPRAZOLE MAGNESIUM\NAPROXEN
     Dosage: 500 MILLIGRAM, BID
     Route: 050
  14. NEULASTA [Suspect]
     Active Substance: PEGFILGRASTIM
     Indication: PRODUCT USED FOR UNKNOWN INDICATION
     Dosage: 6 MILLIGRAM (AS PER PRESCRIPTION)
     Route: 058
  15. CYCLIZINE [Concomitant]
     Active Substance: CYCLIZINE
     Dosage: 50 MILLIGRAM, AS NECESSARY (PRN, AS REQUIRED)
     Route: 050

REACTIONS (3)
  - Decreased appetite [Recovering/Resolving]
  - Joint swelling [Recovering/Resolving]
  - Malaise [Recovering/Resolving]

NARRATIVE: CASE EVENT DATE: 20190923
